FAERS Safety Report 20002197 (Version 1)
Quarter: 2021Q4

REPORT INFORMATION
  Report Type: Spontaneous
  Country: US (occurrence: US)
  Receive Date: 20211027
  Receipt Date: 20211027
  Transmission Date: 20220303
  Serious: Yes (Other)
  Sender: FDA-Public Use
  Company Number: US-FRESENIUS KABI-FK202111557

PATIENT
  Age: 24 Year
  Sex: Female

DRUGS (2)
  1. CARBOPLATIN [Suspect]
     Active Substance: CARBOPLATIN
     Indication: Astrocytoma
     Dosage: 11 CYCLES
     Route: 013
  2. MELPHALAN [Concomitant]
     Active Substance: MELPHALAN
     Indication: Astrocytoma
     Dosage: 11 CYCLES
     Route: 013

REACTIONS (2)
  - Cystitis haemorrhagic [Unknown]
  - Hypersensitivity [Unknown]
